FAERS Safety Report 13780479 (Version 1)
Quarter: 2017Q3

REPORT INFORMATION
  Report Type: Spontaneous
  Country: US (occurrence: US)
  Receive Date: 20170724
  Receipt Date: 20170724
  Transmission Date: 20171127
  Serious: No
  Sender: FDA-Public Use
  Company Number: US-SUNSHINE LAKE PHARMA CO, LTD.-2023659

PATIENT
  Sex: Female

DRUGS (1)
  1. CLARITHROMYCIN. [Suspect]
     Active Substance: CLARITHROMYCIN
     Route: 048

REACTIONS (4)
  - Pruritus [None]
  - Myalgia [None]
  - Muscle spasms [None]
  - Rash [Unknown]
